FAERS Safety Report 6481584-9 (Version None)
Quarter: 2009Q4

REPORT INFORMATION
  Report Type: 
  Country: None (occurrence: None)
  Receive Date: 20091208
  Receipt Date: 20091125
  Transmission Date: 20100525
  Serious: Yes (Death, Hospitalization)
  Sender: FDA-Public Use
  Company Number: US-SANOFI-AVENTIS-2009SA005804

PATIENT
  Age: 75 Year
  Sex: Male
  Weight: 102 kg

DRUGS (8)
  1. FUROSEMIDE [Suspect]
     Indication: DRUG USE FOR UNKNOWN INDICATION
     Route: 048
     Dates: start: 20080901, end: 20091025
  2. INVESTIGATIONAL DRUG [Concomitant]
     Route: 048
     Dates: start: 20090831, end: 20091024
  3. ALL OTHER THERAPEUTIC PRODUCTS [Concomitant]
     Dates: start: 20090831
  4. DECADRON /CAN/ [Concomitant]
     Dates: start: 20090827, end: 20091020
  5. CARDURA /IRE/ [Concomitant]
     Dates: start: 20081007
  6. KEPPRA [Concomitant]
     Dates: start: 20090824
  7. METOPROLOL [Concomitant]
     Dates: start: 20090408
  8. SPIRONOLACTONE [Concomitant]
     Dates: start: 20091016

REACTIONS (5)
  - DEEP VEIN THROMBOSIS [None]
  - DEHYDRATION [None]
  - DYSPNOEA [None]
  - HYPERGLYCAEMIA [None]
  - HYPOTENSION [None]
